FAERS Safety Report 25082488 (Version 1)
Quarter: 2025Q1

REPORT INFORMATION
  Report Type: Spontaneous
  Country: US (occurrence: US)
  Receive Date: 20250317
  Receipt Date: 20250317
  Transmission Date: 20250409
  Serious: Yes (Other)
  Sender: COOPERSURGICAL
  Company Number: US-COOPERSURGICAL, INC.-2025CPS001826

PATIENT
  Age: 21 Year
  Sex: Female
  Weight: 79.365 kg

DRUGS (1)
  1. PARAGARD T 380A [Suspect]
     Active Substance: COPPER
     Indication: Contraception
     Route: 015
     Dates: start: 200811

REACTIONS (23)
  - Reproductive complication associated with device [Not Recovered/Not Resolved]
  - Ovarian cyst [Not Recovered/Not Resolved]
  - Female sterilisation [Recovered/Resolved]
  - Device breakage [Unknown]
  - Foreign body in reproductive tract [Unknown]
  - Complication of device removal [Unknown]
  - Pregnancy with contraceptive device [Recovered/Resolved]
  - Drug ineffective [Unknown]
  - Abortion spontaneous [Recovered/Resolved]
  - Uterine pain [Not Recovered/Not Resolved]
  - Premenstrual syndrome [Unknown]
  - Post-traumatic stress disorder [Not Recovered/Not Resolved]
  - Depression [Not Recovered/Not Resolved]
  - Perinatal depression [Recovered/Resolved]
  - Emotional distress [Not Recovered/Not Resolved]
  - Anxiety [Not Recovered/Not Resolved]
  - Panic attack [Not Recovered/Not Resolved]
  - Vaginal discharge [Not Recovered/Not Resolved]
  - Pelvic pain [Not Recovered/Not Resolved]
  - Vaginal infection [Not Recovered/Not Resolved]
  - Muscle spasms [Not Recovered/Not Resolved]
  - Pain [Unknown]
  - Abnormal uterine bleeding [Not Recovered/Not Resolved]

NARRATIVE: CASE EVENT DATE: 20080101
